FAERS Safety Report 4650146-8 (Version None)
Quarter: 2005Q2

REPORT INFORMATION
  Report Type: 
  Country: None (occurrence: None)
  Receive Date: 20050428
  Receipt Date: 20050415
  Transmission Date: 20051028
  Serious: Yes (Life-Threatening, Hospitalization, Other)
  Sender: FDA-Public Use
  Company Number: 2005027969

PATIENT
  Age: 54 Year
  Sex: Female

DRUGS (6)
  1. PROVERA [Suspect]
     Indication: HORMONE REPLACEMENT THERAPY
     Dosage: 2.5 MG (2.5 MG, QD)
     Dates: start: 19930701, end: 19941030
  2. CONJUGATED ESTROGENS [Suspect]
     Indication: HORMONE REPLACEMENT THERAPY
     Dosage: 0.625 MG (0.625 MG, QD), ORAL
     Route: 048
     Dates: start: 19930701, end: 19961115
  3. CYPROTERONE ACETATE (CYPROTERONE ACETATE) [Suspect]
     Indication: HORMONE REPLACEMENT THERAPY
     Dosage: 1 MG (1 MG, QD), ORAL
     Route: 048
     Dates: start: 19941031, end: 19961115
  4. WARFARIN SODIUM [Concomitant]
  5. SIMVASTATIN [Concomitant]
  6. ETHYL ICOSAPENTATE (ETHYL ICOSAPENTATE) [Concomitant]

REACTIONS (3)
  - BREAST CANCER STAGE II [None]
  - OESTROGEN RECEPTOR ASSAY POSITIVE [None]
  - PROGESTERONE RECEPTOR ASSAY POSITIVE [None]
